FAERS Safety Report 6929200-3 (Version None)
Quarter: 2010Q3

REPORT INFORMATION
  Report Type: 
  Country: None (occurrence: None)
  Receive Date: 20100817
  Receipt Date: 20100809
  Transmission Date: 20110219
  Serious: Yes (Hospitalization)
  Sender: FDA-Public Use
  Company Number: US-AMGEN-KDC429980

PATIENT
  Age: 64 Year
  Sex: Male
  Weight: 105.68 kg

DRUGS (5)
  1. PANITUMUMAB [Suspect]
     Indication: OESOPHAGEAL CARCINOMA
     Route: 042
     Dates: start: 20100405
  2. CISPLATIN [Suspect]
     Route: 042
     Dates: start: 20100405
  3. DOCETAXEL [Suspect]
     Dates: start: 20100405
  4. RADIATION THERAPY [Suspect]
     Dates: start: 20100405
  5. NORCO [Concomitant]

REACTIONS (8)
  - DIARRHOEA [None]
  - ENDOCARDITIS [None]
  - FEBRILE NEUTROPENIA [None]
  - NAUSEA [None]
  - NEUTROPENIA [None]
  - OESOPHAGITIS [None]
  - RENAL FAILURE [None]
  - VOMITING [None]
